FAERS Safety Report 12471394 (Version 1)
Quarter: 2016Q2

REPORT INFORMATION
  Report Type: Spontaneous
  Country: US (occurrence: None)
  Receive Date: 20160615
  Receipt Date: 20160615
  Transmission Date: 20160815
  Serious: Yes (Other)
  Sender: FDA-Public Use
  Company Number: None

PATIENT
  Age: 67 Year
  Sex: Female
  Weight: 65.77 kg

DRUGS (1)
  1. ALENDRONATE SODIUM, 70 MG WEEKLY [Suspect]
     Active Substance: ALENDRONATE SODIUM
     Indication: OSTEOPOROSIS
     Route: 048

REACTIONS (2)
  - Pain in extremity [None]
  - Femur fracture [None]

NARRATIVE: CASE EVENT DATE: 20150414
